FAERS Safety Report 6827067-5 (Version None)
Quarter: 2010Q3

REPORT INFORMATION
  Report Type: 
  Country: None (occurrence: None)
  Receive Date: 20100709
  Receipt Date: 20100701
  Transmission Date: 20110219
  Serious: Yes (Other)
  Sender: FDA-Public Use
  Company Number: JP-MERCK-1006USA04426

PATIENT
  Age: 82 Year
  Sex: Female
  Weight: 33 kg

DRUGS (6)
  1. HYZAAR [Suspect]
     Indication: HYPERTENSION
     Route: 048
     Dates: start: 20100611, end: 20100623
  2. CYCLOSERINE [Concomitant]
     Route: 048
     Dates: start: 20100602
  3. JUVELA [Concomitant]
     Route: 048
     Dates: start: 20100319
  4. NORVASC [Concomitant]
     Indication: HYPERTENSION
     Route: 048
     Dates: start: 20100319
  5. MICARDIS [Concomitant]
     Indication: HYPERTENSION
     Route: 048
     Dates: start: 20100419, end: 20100610
  6. RIFAMPIN [Concomitant]
     Route: 048
     Dates: start: 20100319

REACTIONS (1)
  - ARRHYTHMIA [None]
